FAERS Safety Report 5591375-9 (Version None)
Quarter: 2008Q1

REPORT INFORMATION
  Report Type: 
  Country: None (occurrence: None)
  Receive Date: 20080111
  Receipt Date: 20080111
  Transmission Date: 20080703
  Serious: Yes (Hospitalization)
  Sender: FDA-Public Use
  Company Number: None

PATIENT
  Age: 56 Year
  Sex: Male
  Weight: 72 kg

DRUGS (1)
  1. ALTACE [Suspect]
     Indication: CEREBROVASCULAR ACCIDENT
     Dosage: 10 MG  DAILY  PO
     Route: 048
     Dates: start: 20071117, end: 20071121

REACTIONS (3)
  - CHOKING SENSATION [None]
  - PHARYNGEAL OEDEMA [None]
  - SWOLLEN TONGUE [None]
